FAERS Safety Report 20194681 (Version 1)
Quarter: 2021Q4

REPORT INFORMATION
  Report Type: Spontaneous
  Country: TW (occurrence: TW)
  Receive Date: 20211216
  Receipt Date: 20211216
  Transmission Date: 20220303
  Serious: Yes (Other)
  Sender: FDA-Public Use
  Company Number: TW-NOVARTISPH-NVSC2021TW287757

PATIENT
  Age: 72 Year
  Sex: Female

DRUGS (1)
  1. CAPMATINIB [Suspect]
     Active Substance: CAPMATINIB
     Indication: Non-small cell lung cancer
     Dosage: UNK
     Route: 065

REACTIONS (6)
  - Ileus paralytic [Unknown]
  - Septic shock [Unknown]
  - Pneumonia aspiration [Unknown]
  - Gangrene [Unknown]
  - Peripheral arterial occlusive disease [Unknown]
  - Electrolyte imbalance [Unknown]
